FAERS Safety Report 7299640-4 (Version None)
Quarter: 2011Q1

REPORT INFORMATION
  Report Type: 
  Country: None (occurrence: None)
  Receive Date: 20110217
  Receipt Date: 20110214
  Transmission Date: 20110831
  Serious: Yes (Hospitalization)
  Sender: FDA-Public Use
  Company Number: US-US-EMD SERONO, INC.-7042414

PATIENT
  Sex: Female

DRUGS (5)
  1. TOPAMAX [Concomitant]
     Indication: HEADACHE
  2. VITAMIN D [Concomitant]
  3. REBIF [Suspect]
     Indication: MULTIPLE SCLEROSIS
     Route: 058
     Dates: start: 20110131, end: 20110101
  4. REBIF [Suspect]
     Route: 058
     Dates: start: 20110101
  5. MULTI-VITAMIN [Concomitant]

REACTIONS (1)
  - MULTIPLE SCLEROSIS RELAPSE [None]
